FAERS Safety Report 22926712 (Version 2)
Quarter: 2023Q4

REPORT INFORMATION
  Report Type: Report from Study
  Country: US (occurrence: US)
  Receive Date: 20230910
  Receipt Date: 20231205
  Transmission Date: 20240110
  Serious: Yes (Other)
  Sender: FDA-Public Use
  Company Number: US-SANDOZ-SDZ2023US005414

PATIENT
  Age: 50 Year
  Sex: Female
  Weight: 63.492 kg

DRUGS (2)
  1. TREPROSTINIL [Suspect]
     Active Substance: TREPROSTINIL
     Indication: Pulmonary arterial hypertension
     Dosage: 150 NG/KG/MIN, CONT
     Route: 042
     Dates: start: 20191015
  2. OPSUMIT [Concomitant]
     Active Substance: MACITENTAN
     Indication: Product used for unknown indication
     Dosage: UNK
     Route: 065

REACTIONS (6)
  - Complication associated with device [Unknown]
  - Skin infection [Not Recovered/Not Resolved]
  - Hypersomnia [Unknown]
  - Sleep disorder [Unknown]
  - Product dose omission issue [Unknown]
  - Medical device site infection [Unknown]

NARRATIVE: CASE EVENT DATE: 20231001
